FAERS Safety Report 17673628 (Version 3)
Quarter: 2020Q2

REPORT INFORMATION
  Report Type: Report from Study
  Country: US (occurrence: US)
  Receive Date: 20200416
  Receipt Date: 20200423
  Transmission Date: 20200714
  Serious: No
  Sender: FDA-Public Use
  Company Number: US-ROCHE-2579808

PATIENT
  Age: 41 Year
  Sex: Female
  Weight: 55.8 kg

DRUGS (11)
  1. EXEMESTANE. [Suspect]
     Active Substance: EXEMESTANE
     Indication: BREAST CANCER
     Dosage: ON 01/APR/2020, SHE RECEIVED MOST RECENT DOSE EXEMESTANE AT THE DOSE OF 25 (UNIT WAS NOT REPORTED) P
     Route: 048
     Dates: start: 20200220
  2. VENLAFAXINE [Concomitant]
     Active Substance: VENLAFAXINE HYDROCHLORIDE
     Indication: SCIATICA
     Route: 048
     Dates: start: 20190927
  3. GABAPENTIN. [Concomitant]
     Active Substance: GABAPENTIN
     Indication: HOT FLUSH
     Route: 065
     Dates: start: 20190408
  4. LORAZEPAM. [Concomitant]
     Active Substance: LORAZEPAM
     Indication: INSOMNIA
     Route: 048
     Dates: start: 20200106
  5. DENOSUMAB [Concomitant]
     Active Substance: DENOSUMAB
     Indication: METASTASES TO BONE
     Route: 058
  6. BEVACIZUMAB. [Suspect]
     Active Substance: BEVACIZUMAB
     Indication: BREAST CANCER
     Dosage: 10 MILLIGRAMS PER KILOGRAM (MG/KG) VIA IV INFUSION ON DAYS 1 AND 15 OF EACH 28-DAY CYCLE?DATE OF MOS
     Route: 042
     Dates: start: 20200220
  7. CLINDAMYCIN. [Concomitant]
     Active Substance: CLINDAMYCIN
     Indication: ACNE
     Route: 061
     Dates: start: 20190418
  8. FULVESTRANT. [Suspect]
     Active Substance: FULVESTRANT
     Indication: BREAST CANCER
     Dosage: 500 MG INTRAMUSCULARLY ON DAYS 1 AND 15 OF CYCLE 1 AND THEREAFTER ON DAY 1 OF EACH 28-DAY CYCLE?OF M
     Route: 030
     Dates: start: 20191205
  9. CHOLECALCIFEROL [Concomitant]
     Active Substance: CHOLECALCIFEROL
     Indication: PROPHYLAXIS
     Route: 048
     Dates: start: 20190225
  10. ATEZOLIZUMAB. [Suspect]
     Active Substance: ATEZOLIZUMAB
     Indication: BREAST CANCER
     Dosage: ON DAYS 1 AND 15 OF EACH 28-DAY CYCLE.
     Route: 041
     Dates: start: 20200220
  11. AMLODIPINE [Concomitant]
     Active Substance: AMLODIPINE BESYLATE
     Indication: HYPERTENSION
     Route: 065
     Dates: start: 20200316, end: 20200402

REACTIONS (1)
  - Liver function test increased [Recovering/Resolving]

NARRATIVE: CASE EVENT DATE: 20200401
